FAERS Safety Report 7739925-8 (Version None)
Quarter: 2011Q3

REPORT INFORMATION
  Report Type: 
  Country: None (occurrence: None)
  Receive Date: 20110909
  Receipt Date: 20110907
  Transmission Date: 20111222
  Serious: Yes (Death, Other)
  Sender: FDA-Public Use
  Company Number: PHHY2010CA47985

PATIENT
  Sex: Female

DRUGS (3)
  1. SANDOSTATIN LAR [Suspect]
     Indication: NEUROENDOCRINE TUMOUR
     Dosage: 60 MG, EVERY 4 WEEKS
     Route: 030
     Dates: start: 20080814, end: 20091014
  2. AFINITOR [Suspect]
     Indication: NEUROENDOCRINE TUMOUR
     Dosage: 10 MG, DAILY
     Route: 048
     Dates: start: 20100805, end: 20110701
  3. SANDOSTATIN LAR [Suspect]
     Dosage: 60 MG, EVERY 4 WEEKS
     Route: 030
     Dates: start: 20100301

REACTIONS (3)
  - HEART RATE INCREASED [None]
  - DEATH [None]
  - HYPERTENSION [None]
